FAERS Safety Report 20032976 (Version 1)
Quarter: 2021Q4

REPORT INFORMATION
  Report Type: Spontaneous
  Country: US (occurrence: US)
  Receive Date: 20211104
  Receipt Date: 20211104
  Transmission Date: 20220303
  Serious: Yes (Death, Life-Threatening, Other)
  Sender: FDA-Public Use
  Company Number: US-AMGEN-USASP2021172013

PATIENT

DRUGS (4)
  1. FILGRASTIM [Suspect]
     Active Substance: FILGRASTIM
     Indication: Neutropenia
     Dosage: 5 MILLIGRAM/KILOGRAM, QD
     Route: 065
  2. FILGRASTIM [Suspect]
     Active Substance: FILGRASTIM
     Indication: Prophylaxis
  3. DOCETAXEL [Concomitant]
     Active Substance: DOCETAXEL
     Dosage: 75 MILLIGRAM/SQ. METER, OVER 1 H
     Route: 042
  4. CISPLATIN [Concomitant]
     Active Substance: CISPLATIN
     Dosage: 75 MILLIGRAM/SQ. METER, OVER 2 H EVERY 21 DAYS FOR 3 CYCLES

REACTIONS (38)
  - Abscess [Fatal]
  - Pericarditis [Fatal]
  - Death [Fatal]
  - Pulmonary embolism [Fatal]
  - Neutropenic sepsis [Fatal]
  - Post procedural complication [Fatal]
  - Pneumonia [Fatal]
  - Hepatitis alcoholic [Fatal]
  - Pneumonitis [Fatal]
  - Pneumonia aspiration [Fatal]
  - Respiratory failure [Fatal]
  - Haematemesis [Fatal]
  - Acute respiratory failure [Fatal]
  - Small intestinal obstruction [Fatal]
  - Acute myeloid leukaemia [Fatal]
  - Non-small cell lung cancer [Fatal]
  - Cardiovascular disorder [Fatal]
  - Leukopenia [Unknown]
  - Thrombocytopenia [Unknown]
  - Neutropenia [Unknown]
  - Febrile neutropenia [Unknown]
  - Oesophagitis [Unknown]
  - Ototoxicity [Unknown]
  - Neuropathy peripheral [Unknown]
  - Scleroderma-like reaction [Unknown]
  - Myelosuppression [Unknown]
  - Oesophageal carcinoma [Unknown]
  - Fatigue [Unknown]
  - Vomiting [Unknown]
  - Diarrhoea [Unknown]
  - Therapy non-responder [Unknown]
  - Dermatitis [Unknown]
  - Blood creatinine abnormal [Unknown]
  - Radiation skin injury [Unknown]
  - Infection [Unknown]
  - Adverse event [Unknown]
  - Hypersensitivity [Unknown]
  - Decreased appetite [Unknown]
